FAERS Safety Report 24347469 (Version 1)
Quarter: 2024Q3

REPORT INFORMATION
  Report Type: Report from Study
  Country: CA (occurrence: CA)
  Receive Date: 20240922
  Receipt Date: 20240922
  Transmission Date: 20241016
  Serious: Yes (Other)
  Sender: JOHNSON AND JOHNSON
  Company Number: CA-JNJFOC-20240836263

PATIENT
  Age: 30 Year
  Sex: Female

DRUGS (4)
  1. STELARA [Suspect]
     Active Substance: USTEKINUMAB
     Indication: Colitis ulcerative
     Route: 058
     Dates: start: 20230721
  2. STELARA [Suspect]
     Active Substance: USTEKINUMAB
     Route: 058
     Dates: start: 20240814
  3. STELARA [Suspect]
     Active Substance: USTEKINUMAB
     Route: 058
  4. STELARA [Suspect]
     Active Substance: USTEKINUMAB
     Route: 058
     Dates: start: 20240911

REACTIONS (5)
  - Erythema [Recovered/Resolved]
  - Pyrexia [Recovered/Resolved]
  - Pain [Unknown]
  - Frequent bowel movements [Not Recovered/Not Resolved]
  - General physical health deterioration [Not Recovered/Not Resolved]

NARRATIVE: CASE EVENT DATE: 20240813
